FAERS Safety Report 18728003 (Version 1)
Quarter: 2021Q1

REPORT INFORMATION
  Report Type: Spontaneous
  Country: US (occurrence: US)
  Receive Date: 20210112
  Receipt Date: 20210112
  Transmission Date: 20210419
  Serious: Yes (Hospitalization, Other)
  Sender: FDA-Public Use
  Company Number: US-CIPLA LTD.-2021US00072

PATIENT

DRUGS (3)
  1. VALPROATE [Suspect]
     Active Substance: VALPROIC ACID
     Dosage: 5 PILLS, UNK
     Route: 065
  2. ASPIRIN [ACETYLSALICYLIC ACID] [Suspect]
     Active Substance: ASPIRIN
     Dosage: 30 PILLS (?2500 MG), UNK
     Route: 065
  3. AMLODIPINE [Suspect]
     Active Substance: AMLODIPINE BESYLATE
     Dosage: 15 PILLS OF 75 MG, UNK
     Route: 065

REACTIONS (10)
  - Hypotension [Recovering/Resolving]
  - Acidosis [Unknown]
  - Unevaluable event [Unknown]
  - Intentional overdose [Unknown]
  - Shock [Recovering/Resolving]
  - Distributive shock [Recovering/Resolving]
  - Hypoxia [Recovered/Resolved]
  - Pulmonary oedema [Recovered/Resolved]
  - Acute kidney injury [Unknown]
  - Fluid overload [Recovered/Resolved]
